FAERS Safety Report 5575457-3 (Version None)
Quarter: 2007Q4

REPORT INFORMATION
  Report Type: 
  Country: None (occurrence: None)
  Receive Date: 20071227
  Receipt Date: 20071218
  Transmission Date: 20080405
  Serious: Yes (Other)
  Sender: FDA-Public Use
  Company Number: JP-ABBOTT-07P-087-0427638-00

PATIENT
  Age: 10 Month
  Sex: Male

DRUGS (2)
  1. CEFZON SUSPENSION [Suspect]
     Indication: PHARYNGITIS
     Route: 048
     Dates: start: 20071123, end: 20071123
  2. CARBOCISTEINE [Concomitant]
     Indication: DRUG USE FOR UNKNOWN INDICATION
     Dates: start: 20071123, end: 20071123

REACTIONS (5)
  - CHILLS [None]
  - PALLOR [None]
  - RASH [None]
  - SHOCK [None]
  - WHEEZING [None]
